FAERS Safety Report 14095232 (Version 5)
Quarter: 2018Q4

REPORT INFORMATION
  Report Type: Spontaneous
  Country: NO (occurrence: NO)
  Receive Date: 20171016
  Receipt Date: 20181210
  Transmission Date: 20190204
  Serious: Yes (Other)
  Sender: FDA-Public Use
  Company Number: NO-MYLANLABS-2017M1063232

PATIENT
  Age: 20 Year
  Sex: Male

DRUGS (5)
  1. QUETIAPINE. [Suspect]
     Active Substance: QUETIAPINE
     Indication: MENTAL DISORDER
     Dosage: 200 MG, QD, (1 DF= 200-1600 MG PER DAY)
     Route: 065
  2. QUETIAPINE. [Suspect]
     Active Substance: QUETIAPINE
     Dosage: 1 DF, QD (1 DF= 200-1600 MG PER DAY)
     Route: 065
  3. ARIPIPRAZOLE. [Suspect]
     Active Substance: ARIPIPRAZOLE
     Indication: MENTAL DISORDER
     Dosage: UNK
     Route: 065
  4. QUETIAPINE. [Suspect]
     Active Substance: QUETIAPINE
     Dosage: 1600 MG, QD (1 DF= 200-1600 MG PER DAY)
     Route: 065
  5. ASENAPINE. [Suspect]
     Active Substance: ASENAPINE
     Indication: MENTAL DISORDER
     Dosage: 10 MG, QD
     Route: 048

REACTIONS (5)
  - Product use in unapproved indication [Unknown]
  - Eye movement disorder [Recovering/Resolving]
  - Oculogyric crisis [Unknown]
  - Dystonia [Recovering/Resolving]
  - Excessive eye blinking [Recovering/Resolving]
